FAERS Safety Report 10433399 (Version 7)
Quarter: 2014Q4

REPORT INFORMATION
  Report Type: Spontaneous
  Country: US (occurrence: US)
  Receive Date: 20140905
  Receipt Date: 20141124
  Transmission Date: 20150528
  Serious: Yes (Life-Threatening, Hospitalization, Disabling, Other)
  Sender: FDA-Public Use
  Company Number: US-009507513-0307USA00249

PATIENT
  Sex: Female
  Weight: 64.85 kg

DRUGS (5)
  1. FOSAMAX [Suspect]
     Active Substance: ALENDRONATE SODIUM
     Indication: OSTEOPOROSIS
     Dosage: 10 MG, QD
     Route: 048
     Dates: start: 200209, end: 20030608
  2. FOSAMAX [Suspect]
     Active Substance: ALENDRONATE SODIUM
     Indication: CALCIUM DEFICIENCY
     Dosage: 10 MG, UNK
     Route: 048
     Dates: start: 2005
  3. FOSAMAX [Suspect]
     Active Substance: ALENDRONATE SODIUM
     Dosage: 1 DF, QD
     Route: 048
     Dates: start: 2007
  4. ACCUPRIL [Concomitant]
     Active Substance: QUINAPRIL HYDROCHLORIDE
     Dosage: 40 MG, A DAY
     Dates: start: 1995
  5. CLONIDINE. [Concomitant]
     Active Substance: CLONIDINE
     Dosage: 0.02 MG, 2 TIMES (DOSES) A DAY
     Dates: start: 1999

REACTIONS (26)
  - Barrett^s oesophagus [Not Recovered/Not Resolved]
  - Choking sensation [Unknown]
  - Decreased appetite [Unknown]
  - Injury [Recovering/Resolving]
  - Vomiting [Recovering/Resolving]
  - Diarrhoea [Recovering/Resolving]
  - Anxiety [Unknown]
  - Oesophageal ulcer [Unknown]
  - Oesophageal haemorrhage [Recovering/Resolving]
  - Hypertension [Unknown]
  - Hiatus hernia [Unknown]
  - Gastrooesophageal reflux disease [Unknown]
  - Vomiting [Recovering/Resolving]
  - Depressed mood [Unknown]
  - Gastritis erosive [Unknown]
  - Duodenitis [Unknown]
  - Abdominal pain [Recovering/Resolving]
  - Haematemesis [Recovering/Resolving]
  - Chronic gastritis [Not Recovered/Not Resolved]
  - Neuromyopathy [Unknown]
  - Visual impairment [Unknown]
  - Erosive oesophagitis [Not Recovered/Not Resolved]
  - Abdominal pain [Recovering/Resolving]
  - Kyphoscoliosis [Unknown]
  - Femur fracture [Recovering/Resolving]
  - Hypercholesterolaemia [Unknown]

NARRATIVE: CASE EVENT DATE: 20030608
